FAERS Safety Report 8004759-6 (Version None)
Quarter: 2011Q4

REPORT INFORMATION
  Report Type: 
  Country: None (occurrence: None)
  Receive Date: 20111220
  Receipt Date: 20111207
  Transmission Date: 20120403
  Serious: Yes (Hospitalization)
  Sender: FDA-Public Use
  Company Number: 1000024549

PATIENT
  Age: 67 Year
  Sex: Male
  Weight: 45 kg

DRUGS (14)
  1. ROFLUMILAST (ROFLUMILAST) (ROFLUMILAST) [Suspect]
     Indication: CHRONIC OBSTRUCTIVE PULMONARY DISEASE
     Dosage: 500 MCG (500 MCG, 1 IN 1 D), ORAL
     Route: 048
     Dates: start: 20110127, end: 20111026
  2. LISINOPRIL [Concomitant]
  3. OXYGEN (OXYGEN) (OXYGEN) [Concomitant]
  4. FURORESE (FUROSEMIDE) (FUROSEMIDE) [Concomitant]
  5. KEPPRA (LEVETIRACETAM) (LEETIRACETAM) [Concomitant]
  6. SPIRIVA (TIOTROPIUM BROMIDE) (TIOTROPIUM BROMIDE) [Concomitant]
  7. PANZYTRAT (PANCREATIN) (PANCREATIN) [Concomitant]
  8. VITAMIN B12 (VITAMIN B 12) (VITAMIN B 12) [Concomitant]
  9. VALPROAT (VALPROATE SODIUM) (VALPROATE SODIUM) [Concomitant]
  10. SALBUTAMOL (SALBUTAMOL) (AMPOULES) (SALBUTAMOL) [Concomitant]
  11. FORADIL (FORMOTEROL FUMARATE) (FORMOTEROL FUMARATE) [Concomitant]
  12. ASS (ACETYLSALICYLIC ACID) (ACETYLSALICYLIC ACID) [Concomitant]
  13. METOHEXAL (METOPROLOL TARTRATE) (METOPROLOL TARTRATE) [Concomitant]
  14. LISIHEXAL (LISINOPRIL) (LISINOPRIL) [Concomitant]

REACTIONS (5)
  - WEIGHT DECREASED [None]
  - TRANSIENT ISCHAEMIC ATTACK [None]
  - GENERAL PHYSICAL CONDITION ABNORMAL [None]
  - NUTRITIONAL CONDITION ABNORMAL [None]
  - GENERALISED NON-CONVULSIVE EPILEPSY [None]
